FAERS Safety Report 16010767 (Version 2)
Quarter: 2019Q1

REPORT INFORMATION
  Report Type: Spontaneous
  Country: US (occurrence: US)
  Receive Date: 20190227
  Receipt Date: 20190319
  Transmission Date: 20190418
  Serious: Yes (Other)
  Sender: FDA-Public Use
  Company Number: US-GLAXOSMITHKLINE-US2019GSK033939

PATIENT
  Sex: Female
  Weight: 72.56 kg

DRUGS (1)
  1. BUPROPION. [Suspect]
     Active Substance: BUPROPION
     Indication: DEPRESSION
     Dosage: UNK
     Dates: end: 201711

REACTIONS (5)
  - Amnesia [Unknown]
  - Transient ischaemic attack [Unknown]
  - Stress [Unknown]
  - Fall [Unknown]
  - Seizure [Unknown]
